FAERS Safety Report 7158648-X (Version None)
Quarter: 2010Q4

REPORT INFORMATION
  Report Type: 
  Country: None (occurrence: None)
  Receive Date: 20101214
  Receipt Date: 20100617
  Transmission Date: 20110411
  Serious: No
  Sender: FDA-Public Use
  Company Number: US-ASTRAZENECA-2010SE28765

PATIENT
  Age: 39 Year
  Sex: Female

DRUGS (4)
  1. CRESTOR [Suspect]
     Indication: BLOOD CHOLESTEROL INCREASED
     Route: 048
     Dates: start: 20100429, end: 20100525
  2. TRICOR [Suspect]
     Indication: BLOOD CHOLESTEROL INCREASED
     Dates: start: 20090429
  3. NIASPAN [Suspect]
     Indication: BLOOD CHOLESTEROL INCREASED
     Dates: start: 20100525
  4. FLEXERIL [Concomitant]
     Indication: BACK PAIN

REACTIONS (4)
  - CONSTIPATION [None]
  - ERYTHEMA [None]
  - PARAESTHESIA [None]
  - SKIN BURNING SENSATION [None]
